FAERS Safety Report 24842875 (Version 1)
Quarter: 2025Q1

REPORT INFORMATION
  Report Type: Report from Study
  Country: US (occurrence: US)
  Receive Date: 20250115
  Receipt Date: 20250115
  Transmission Date: 20250409
  Serious: Yes (Hospitalization, Other)
  Sender: HRA PHARMA
  Company Number: US-ORG100014127-2023000793

PATIENT
  Age: 39 Year
  Sex: Female

DRUGS (14)
  1. LYSODREN [Suspect]
     Active Substance: MITOTANE
     Indication: Adrenocortical carcinoma
     Dosage: 500 MG: 1 TAB 3 TIMES A DAY
     Route: 048
     Dates: start: 20230623
  2. LYSODREN [Suspect]
     Active Substance: MITOTANE
     Indication: Adrenocortical carcinoma
     Dosage: 500 MG: 2 TAB 3 TIMES A DAY
     Dates: start: 20230706
  3. LYSODREN [Suspect]
     Active Substance: MITOTANE
     Indication: Adrenocortical carcinoma
  4. LYSODREN [Suspect]
     Active Substance: MITOTANE
     Indication: Adrenocortical carcinoma
  5. LYSODREN [Suspect]
     Active Substance: MITOTANE
     Indication: Adrenocortical carcinoma
     Dosage: 02 TABLETS TID
     Dates: end: 20240325
  6. LYSODREN [Suspect]
     Active Substance: MITOTANE
     Indication: Adrenocortical carcinoma
     Dates: start: 20240330
  7. Spironolact  Tab 25 mg/50 mg [Concomitant]
     Indication: Product used for unknown indication
  8. Prazosin HCL Cap 1 mg [Concomitant]
     Indication: Product used for unknown indication
  9. Atenolol Tab 25 mg [Concomitant]
     Indication: Product used for unknown indication
  10. Amlodipine tab 10 mg [Concomitant]
     Indication: Product used for unknown indication
  11. GABAPENTIN [Concomitant]
     Active Substance: GABAPENTIN
     Indication: Product used for unknown indication
  12. Triamcinolon cre 0.1% [Concomitant]
     Indication: Product used for unknown indication
  13. metoprol  tart tablet 25 mg [Concomitant]
     Indication: Product used for unknown indication
  14. Hydrocort tab 10 mg [Concomitant]
     Indication: Product used for unknown indication

REACTIONS (6)
  - Adrenocortical insufficiency acute [Recovering/Resolving]
  - Insomnia [Unknown]
  - Rash [Recovered/Resolved]
  - Fatigue [Not Recovered/Not Resolved]
  - Nausea [Not Recovered/Not Resolved]
  - Pruritus [Not Recovered/Not Resolved]

NARRATIVE: CASE EVENT DATE: 20230701
